FAERS Safety Report 14504974 (Version 1)
Quarter: 2018Q1

REPORT INFORMATION
  Report Type: Spontaneous
  Country: US (occurrence: US)
  Receive Date: 20180208
  Receipt Date: 20180208
  Transmission Date: 20180509
  Serious: Yes (Other)
  Sender: FDA-Public Use
  Company Number: US-JNJFOC-20171227006

PATIENT
  Sex: Female
  Weight: 60 kg

DRUGS (1)
  1. IMBRUVICA [Suspect]
     Active Substance: IBRUTINIB
     Indication: NON-HODGKIN^S LYMPHOMA
     Route: 065

REACTIONS (8)
  - Thrombocytopenia [Unknown]
  - Lymphopenia [Unknown]
  - Vomiting [Unknown]
  - Renal failure [Unknown]
  - Iron deficiency anaemia [Unknown]
  - Abdominal pain lower [Unknown]
  - Nausea [Unknown]
  - Constipation [Unknown]
